FAERS Safety Report 4355865-9 (Version None)
Quarter: 2004Q2

REPORT INFORMATION
  Report Type: 
  Country: None (occurrence: None)
  Receive Date: 20040511
  Receipt Date: 20040430
  Transmission Date: 20050107
  Serious: Yes (Hospitalization)
  Sender: FDA-Public Use
  Company Number: 200414773GDDC

PATIENT
  Age: 74 Year
  Sex: Female

DRUGS (13)
  1. PLENDIL [Suspect]
     Indication: HYPERTENSION
     Dosage: DOSE: UNK
     Route: 048
  2. LASIX [Suspect]
     Route: 048
  3. CRESTOR [Suspect]
     Route: 048
     Dates: start: 20040226, end: 20040408
  4. GLUCOVANCE [Suspect]
     Dosage: DOSE: 5/500
  5. LOTREL [Suspect]
     Dosage: DOSE: 10/20
  6. ZAROXOLYN [Suspect]
     Dosage: DOSE: UNK
  7. STARLIX [Suspect]
     Dosage: DOSE: UNK
  8. DIGITEK [Concomitant]
  9. VITAMIN B-12 [Concomitant]
     Dosage: DOSE: UNK
  10. IRON [Concomitant]
  11. LIPITOR [Concomitant]
     Dates: start: 19990101, end: 20040226
  12. POTASSIUM [Concomitant]
     Dosage: DOSE: UNK
  13. ASPIRIN [Concomitant]
     Dosage: DOSE: UNK

REACTIONS (14)
  - ANAEMIA OF CHRONIC DISEASE [None]
  - ARRHYTHMIA [None]
  - ASTHENIA [None]
  - DECREASED APPETITE [None]
  - DIARRHOEA [None]
  - HYPERKALAEMIA [None]
  - HYPERPHOSPHATAEMIA [None]
  - LACTIC ACIDOSIS [None]
  - MYALGIA [None]
  - MYOCARDIAL INFARCTION [None]
  - NAUSEA [None]
  - PAIN [None]
  - RENAL FAILURE ACUTE [None]
  - VOMITING [None]
